FAERS Safety Report 5924821-9 (Version None)
Quarter: 2008Q4

REPORT INFORMATION
  Report Type: 
  Country: None (occurrence: None)
  Receive Date: 20081017
  Receipt Date: 20081017
  Transmission Date: 20090506
  Serious: Yes (Other)
  Sender: FDA-Public Use
  Company Number: None

PATIENT
  Age: 2 Year
  Sex: Male
  Weight: 12 kg

DRUGS (1)
  1. CHLORAPREP WITH TINT [Suspect]

REACTIONS (3)
  - APPLICATION SITE RASH [None]
  - LOCAL SWELLING [None]
  - TENDERNESS [None]
